FAERS Safety Report 14814141 (Version 1)
Quarter: 2018Q2

REPORT INFORMATION
  Report Type: Spontaneous
  Country: US (occurrence: US)
  Receive Date: 20180426
  Receipt Date: 20180426
  Transmission Date: 20180711
  Serious: Yes (Other)
  Sender: FDA-Public Use
  Company Number: US-AMGEN-USASP2018054261

PATIENT
  Sex: Female

DRUGS (1)
  1. ARANESP [Suspect]
     Active Substance: DARBEPOETIN ALFA
     Indication: ANAEMIA
     Dosage: 40 MCG, QWK
     Route: 065
     Dates: start: 201801

REACTIONS (5)
  - Coronary angioplasty [Unknown]
  - Fatigue [Unknown]
  - Catheterisation cardiac [Unknown]
  - Heart valve replacement [Unknown]
  - Malaise [Unknown]

NARRATIVE: CASE EVENT DATE: 2018
